FAERS Safety Report 4953465-0 (Version None)
Quarter: 2006Q1

REPORT INFORMATION
  Report Type: 
  Country: None (occurrence: None)
  Receive Date: 20060324
  Receipt Date: 20060321
  Transmission Date: 20060701
  Serious: Yes (Hospitalization, Other)
  Sender: FDA-Public Use
  Company Number: DE-BRISTOL-MYERS SQUIBB COMPANY-13321849

PATIENT
  Age: 55 Year
  Sex: Male

DRUGS (6)
  1. CISPLATIN [Suspect]
     Indication: SMALL CELL LUNG CANCER STAGE UNSPECIFIED
     Route: 042
     Dates: start: 20050705, end: 20050705
  2. TOPOTECAN HCL [Suspect]
     Indication: SMALL CELL LUNG CANCER STAGE UNSPECIFIED
     Route: 042
     Dates: start: 20050701, end: 20050705
  3. FENTANYL [Concomitant]
     Dates: start: 20050523
  4. OMEPRAZOLE [Concomitant]
     Dates: start: 20050531
  5. THEOPHYLLINE [Concomitant]
     Dates: start: 20050405
  6. ALPRAZOLAM [Concomitant]
     Dates: start: 20050611

REACTIONS (2)
  - NEUTROPENIA [None]
  - PYREXIA [None]
